FAERS Safety Report 9696223 (Version 2)
Quarter: 2013Q4

REPORT INFORMATION
  Report Type: Report from Study
  Country: NL (occurrence: NL)
  Receive Date: 20131119
  Receipt Date: 20131204
  Transmission Date: 20140711
  Serious: Yes (Other)
  Sender: FDA-Public Use
  Company Number: PHHY2013NL132172

PATIENT
  Sex: Male

DRUGS (3)
  1. ZOMETA [Suspect]
     Indication: METASTASES TO BONE
     Dosage: 4 MG, ONCE PER 6 WEEKS
     Route: 042
     Dates: start: 20131002, end: 20131118
  2. ACENOCOUMAROL [Concomitant]
     Dosage: UNK UKN, UNK
  3. ELIGARD [Concomitant]
     Dosage: UNK UKN, UNK

REACTIONS (5)
  - Terminal state [Unknown]
  - Prostate cancer metastatic [Unknown]
  - Malignant neoplasm progression [Unknown]
  - Anaemia [Unknown]
  - Malaise [Unknown]
